FAERS Safety Report 26171869 (Version 1)
Quarter: 2025Q4

REPORT INFORMATION
  Report Type: Spontaneous
  Country: JP (occurrence: JP)
  Receive Date: 20251217
  Receipt Date: 20251217
  Transmission Date: 20260118
  Serious: Yes (Other)
  Sender: MERCK SHARP & DOHME LLC
  Company Number: JP-009507513-2359727

PATIENT
  Age: 51 Year
  Sex: Male
  Weight: 72 kg

DRUGS (1)
  1. KEYTRUDA [Suspect]
     Active Substance: PEMBROLIZUMAB
     Indication: Oesophageal adenocarcinoma
     Route: 041
     Dates: end: 20250825

REACTIONS (1)
  - Immune-mediated cystitis [Recovering/Resolving]

NARRATIVE: CASE EVENT DATE: 20251002
